FAERS Safety Report 6723796-2 (Version None)
Quarter: 2010Q2

REPORT INFORMATION
  Report Type: 
  Country: None (occurrence: None)
  Receive Date: 20100513
  Receipt Date: 20100311
  Transmission Date: 20101027
  Serious: No
  Sender: FDA-Public Use
  Company Number: A0785883A

PATIENT
  Age: 77 Year
  Sex: Female

DRUGS (5)
  1. TREXIMET [Suspect]
     Indication: MIGRAINE
     Dosage: 85MGM AS REQUIRED
     Route: 048
     Dates: start: 20080101
  2. LEXAPRO [Concomitant]
  3. TYLENOL-500 [Concomitant]
  4. ASPIRIN [Concomitant]
  5. VITAMINS [Concomitant]

REACTIONS (3)
  - DRUG HYPERSENSITIVITY [None]
  - PHOTODERMATOSIS [None]
  - RASH [None]
